FAERS Safety Report 10676872 (Version 1)
Quarter: 2014Q4

REPORT INFORMATION
  Report Type: Spontaneous
  Country: SE (occurrence: SE)
  Receive Date: 20141226
  Receipt Date: 20141226
  Transmission Date: 20150529
  Serious: Yes (Life-Threatening, Hospitalization)
  Sender: FDA-Public Use
  Company Number: SE-PFIZER INC-2014353724

PATIENT
  Age: 61 Year
  Sex: Male

DRUGS (2)
  1. LYRICA [Suspect]
     Active Substance: PREGABALIN
     Indication: EPILEPSY
     Dosage: 75 MG, 2X/DAY
     Dates: start: 20110512, end: 20110608
  2. LYRICA [Suspect]
     Active Substance: PREGABALIN
     Indication: ANXIETY

REACTIONS (5)
  - Bradyphrenia [Recovered/Resolved with Sequelae]
  - Confusional state [Recovered/Resolved with Sequelae]
  - Seizure [Recovered/Resolved]
  - Memory impairment [Recovered/Resolved with Sequelae]
  - Dementia [Recovered/Resolved with Sequelae]

NARRATIVE: CASE EVENT DATE: 20110517
